FAERS Safety Report 17046389 (Version 1)
Quarter: 2019Q4

REPORT INFORMATION
  Report Type: Spontaneous
  Country: US (occurrence: US)
  Receive Date: 20191119
  Receipt Date: 20191119
  Transmission Date: 20200122
  Serious: Yes (Death)
  Sender: FDA-Public Use
  Company Number: US-ROCHE-2465429

PATIENT
  Age: 90 Year
  Sex: Female
  Weight: 30.7 kg

DRUGS (9)
  1. ISOSORBIDE. [Concomitant]
     Active Substance: ISOSORBIDE
  2. ASPIRIN [ACETYLSALICYLIC ACID] [Concomitant]
     Active Substance: ASPIRIN
  3. FUROSEMIDE. [Concomitant]
     Active Substance: FUROSEMIDE
  4. ACTIVASE [Suspect]
     Active Substance: ALTEPLASE
     Indication: ISCHAEMIC STROKE
     Dosage: GIVEN SAME DAY AFTER COMPUTED TOMOGRAPHY SCAN ;ONGOING: NO?BOLUS 1 TIME
     Route: 042
     Dates: start: 20191017, end: 20191017
  5. ONDANSETRAN [Concomitant]
     Active Substance: ONDANSETRON HYDROCHLORIDE
     Dosage: FREQUENCY*2
     Route: 042
     Dates: start: 20191017, end: 20191017
  6. METOCLOPRAMIDE. [Concomitant]
     Active Substance: METOCLOPRAMIDE
     Dosage: FREQUENCY*1
     Route: 042
     Dates: start: 20191017, end: 20191017
  7. HUMALOG [Concomitant]
     Active Substance: INSULIN LISPRO
  8. HYDRALAZINE [Concomitant]
     Active Substance: HYDRALAZINE HYDROCHLORIDE
  9. METOPROLOL. [Concomitant]
     Active Substance: METOPROLOL

REACTIONS (6)
  - Vomiting [Not Recovered/Not Resolved]
  - Nausea [Not Recovered/Not Resolved]
  - Medication error [Unknown]
  - Cerebrovascular accident [Fatal]
  - Acute kidney injury [Fatal]
  - Pleural effusion [Fatal]

NARRATIVE: CASE EVENT DATE: 20191017
